FAERS Safety Report 12267243 (Version 1)
Quarter: 2016Q2

REPORT INFORMATION
  Report Type: Spontaneous
  Country: US (occurrence: None)
  Receive Date: 20160413
  Receipt Date: 20160413
  Transmission Date: 20160815
  Serious: No
  Sender: FDA-Public Use
  Company Number: None

PATIENT
  Age: 26 Year
  Sex: Female
  Weight: 70.76 kg

DRUGS (1)
  1. LAMOTRIGINE 150MG TABS [Suspect]
     Active Substance: LAMOTRIGINE
     Indication: JUVENILE MYOCLONIC EPILEPSY
     Route: 048
     Dates: start: 2010

REACTIONS (4)
  - Photosensitivity reaction [None]
  - General symptom [None]
  - Seizure [None]
  - Condition aggravated [None]
